FAERS Safety Report 9224116 (Version 1)
Quarter: 2013Q1

REPORT INFORMATION
  Report Type: Spontaneous
  Country: US (occurrence: None)
  Receive Date: 20120914
  Receipt Date: 20120914
  Transmission Date: 20140127
  Serious: Yes (Hospitalization)
  Sender: FDA-Public Use
  Company Number: 217200

PATIENT
  Age: 68 Year
  Sex: Male

DRUGS (3)
  1. INNOHEP ( TINZAPARIN SODIUM) [Suspect]
     Indication: POSTOPERATIVE CARE
  2. INNOHEP ( TINZAPARIN SODIUM) [Suspect]
     Indication: PROPHYLAXIS
  3. WARFARIN ( WARFARIN) [Concomitant]

REACTIONS (1)
  - Heparin-induced thrombocytopenia [None]
